FAERS Safety Report 9126120 (Version 1)
Quarter: 2013Q1

REPORT INFORMATION
  Report Type: Spontaneous
  Country: FR (occurrence: FR)
  Receive Date: 20130117
  Receipt Date: 20130117
  Transmission Date: 20140127
  Serious: Yes (Hospitalization)
  Sender: FDA-Public Use
  Company Number: FR-ABBOTT-13P-056-1030725-00

PATIENT
  Age: 83 Year
  Sex: Female

DRUGS (8)
  1. LIPANTHYL [Suspect]
     Indication: DYSLIPIDAEMIA
     Route: 048
     Dates: end: 20121010
  2. LASILIX [Concomitant]
     Indication: HYPERTENSION
     Dosage: 40 MG DAILY
     Route: 048
     Dates: end: 20121106
  3. ALEPSAL [Concomitant]
     Indication: EPILEPSY
     Dosage: 100 MG DAILY
     Route: 048
  4. FOSAVANCE [Concomitant]
     Indication: PRODUCT USED FOR UNKNOWN INDICATION
     Route: 048
     Dates: end: 20121010
  5. VALSARTAN [Concomitant]
     Indication: HYPERTENSION
     Route: 048
  6. AMLOR [Concomitant]
     Indication: PRODUCT USED FOR UNKNOWN INDICATION
     Route: 048
     Dates: end: 20121010
  7. LEXOMIL [Concomitant]
     Indication: PRODUCT USED FOR UNKNOWN INDICATION
     Route: 048
     Dates: start: 201111
  8. DELURSAN [Concomitant]
     Indication: LIVER FUNCTION TEST ABNORMAL
     Dosage: 200 MG X5
     Route: 048
     Dates: start: 20121013

REACTIONS (2)
  - Autoimmune hepatitis [Recovering/Resolving]
  - Deep vein thrombosis [Unknown]
